FAERS Safety Report 10581992 (Version 2)
Quarter: 2014Q4

REPORT INFORMATION
  Report Type: Spontaneous
  Country: JP (occurrence: JP)
  Receive Date: 20141113
  Receipt Date: 20141113
  Transmission Date: 20150529
  Serious: Yes (Other)
  Sender: FDA-Public Use
  Company Number: JP-EISAI MEDICAL RESEARCH-E2090-03409-SPO-JP

PATIENT
  Age: 74 Year
  Sex: Female

DRUGS (4)
  1. TRANSAMIN [Suspect]
     Active Substance: TRANEXAMIC ACID
     Indication: NASOPHARYNGITIS
     Dosage: UNKNOWN
     Route: 065
     Dates: start: 20130407
  2. DEPAS [Concomitant]
     Active Substance: ETIZOLAM
     Indication: FEELING ABNORMAL
  3. EXCEGRAN [Suspect]
     Active Substance: ZONISAMIDE
     Indication: PAIN
     Route: 048
     Dates: start: 20130411, end: 20130423
  4. LYRICA [Concomitant]
     Active Substance: PREGABALIN
     Indication: PAIN
     Route: 048
     Dates: start: 20130301, end: 20130411

REACTIONS (1)
  - Stevens-Johnson syndrome [Recovering/Resolving]

NARRATIVE: CASE EVENT DATE: 20130417
